FAERS Safety Report 8480178-3 (Version None)
Quarter: 2012Q2

REPORT INFORMATION
  Report Type: 
  Country: None (occurrence: None)
  Receive Date: 20120629
  Receipt Date: 20120621
  Transmission Date: 20120825
  Serious: Yes (Hospitalization)
  Sender: FDA-Public Use
  Company Number: GB-MERCK-1206USA01552

PATIENT

DRUGS (3)
  1. BENDAMUSTINE HYDROCHLORIDE [Suspect]
     Indication: MULTIPLE MYELOMA
     Dosage: 60 MG/M2 ON DAYS 1, 8 (AND 15)
     Route: 065
  2. DECADRON [Suspect]
     Indication: MULTIPLE MYELOMA
     Dosage: ON DAYS 1,2,8,9, 15, 16, AND 22 OR EACH 28 DAY CYCLE.
     Route: 048
  3. THALIDOMIDE [Suspect]
     Indication: MULTIPLE MYELOMA
     Dosage: 50-200MG DAILY
     Route: 065

REACTIONS (2)
  - HYPERGLYCAEMIA [None]
  - MYOPATHY [None]
